FAERS Safety Report 4623309-5 (Version None)
Quarter: 2005Q1

REPORT INFORMATION
  Report Type: 
  Country: None (occurrence: None)
  Receive Date: 20050329
  Receipt Date: 20050322
  Transmission Date: 20050727
  Serious: Yes (Disabling, Other)
  Sender: FDA-Public Use
  Company Number: 2005043620

PATIENT
  Age: 61 Year
  Sex: Female
  Weight: 117.9352 kg

DRUGS (5)
  1. LIPITOR [Suspect]
     Indication: BLOOD CHOLESTEROL INCREASED
     Dosage: ORAL
     Route: 048
     Dates: start: 20041227, end: 20050217
  2. IBUPROFEN [Suspect]
     Indication: ILL-DEFINED DISORDER
     Dates: start: 20050309
  3. METFORMIN HYDROCHLORIDE (METHFORMIN HYDROCHLORIDE) [Concomitant]
  4. ALBUTEROL SULFATE HFA [Concomitant]
  5. INFLUENZA VACCINE (INFLUENZA VACCINE) [Concomitant]

REACTIONS (28)
  - ABASIA [None]
  - AGEUSIA [None]
  - ARTHRALGIA [None]
  - ASTHENIA [None]
  - BONE PAIN [None]
  - BURNING SENSATION [None]
  - CARDIAC FLUTTER [None]
  - CHEST DISCOMFORT [None]
  - CHEST PAIN [None]
  - DECREASED ACTIVITY [None]
  - DIARRHOEA [None]
  - DIFFICULTY IN WALKING [None]
  - DYSPNOEA [None]
  - FAECES DISCOLOURED [None]
  - FEELING COLD [None]
  - FEELING HOT [None]
  - HEART RATE INCREASED [None]
  - HYPERHIDROSIS [None]
  - HYPERSENSITIVITY [None]
  - HYPERTENSION [None]
  - MUSCULOSKELETAL STIFFNESS [None]
  - MYALGIA [None]
  - MYOCARDIAL INFARCTION [None]
  - ORAL INTAKE REDUCED [None]
  - PAIN [None]
  - SENSATION OF HEAVINESS [None]
  - SENSORY DISTURBANCE [None]
  - TREMOR [None]
